FAERS Safety Report 23688960 (Version 1)
Quarter: 2024Q1

REPORT INFORMATION
  Report Type: Spontaneous
  Country: ES (occurrence: ES)
  Receive Date: 20240329
  Receipt Date: 20240329
  Transmission Date: 20240409
  Serious: Yes (Hospitalization, Other)
  Sender: FDA-Public Use
  Company Number: ES-BoehringerIngelheim-2024-BI-017531

PATIENT
  Age: 77 Year
  Sex: Female

DRUGS (13)
  1. OFEV [Suspect]
     Active Substance: NINTEDANIB
     Indication: Hypersensitivity pneumonitis
     Dates: start: 20231215, end: 20240303
  2. OFEV [Suspect]
     Active Substance: NINTEDANIB
     Indication: Fibrosis
     Dosage: PHYSICIAN INDICATED THE PATIENT TO RESUME IT AT DOSAGE OF 100 MG ONCE PER DAY FOR 7 DAYS, AND THEN C
     Dates: start: 20240313, end: 202403
  3. OFEV [Suspect]
     Active Substance: NINTEDANIB
     Dosage: PHYSICIAN INDICATED THE PATIENT TO RESUME IT AT DOSAGE OF 100 MG ONCE PER DAY FOR 7 DAYS, AND THEN C
     Dates: start: 202403
  4. ISOPHANE INSULIN [Concomitant]
     Active Substance: INSULIN NOS
     Indication: Product used for unknown indication
  5. FOSTER [Concomitant]
     Active Substance: BECLOMETHASONE\FORMOTEROL
     Indication: Product used for unknown indication
  6. ACETAMINOPHEN\TRAMADOL HYDROCHLORIDE [Concomitant]
     Active Substance: ACETAMINOPHEN\TRAMADOL HYDROCHLORIDE
     Indication: Product used for unknown indication
  7. LETROZOLE [Concomitant]
     Active Substance: LETROZOLE
     Indication: Product used for unknown indication
  8. AMLODIPINE [Concomitant]
     Active Substance: AMLODIPINE BESYLATE
     Indication: Product used for unknown indication
  9. Ixia (olmesartan) [Concomitant]
     Indication: Product used for unknown indication
  10. Natecal D (calcium) [Concomitant]
     Indication: Product used for unknown indication
  11. DOXAZOSIN [Concomitant]
     Active Substance: DOXAZOSIN MESYLATE
     Indication: Product used for unknown indication
  12. SIMVASTATIN [Concomitant]
     Active Substance: SIMVASTATIN
     Indication: Product used for unknown indication
  13. MONTELUKAST [Concomitant]
     Active Substance: MONTELUKAST SODIUM
     Indication: Product used for unknown indication

REACTIONS (2)
  - Diarrhoea [Recovered/Resolved]
  - Deep vein thrombosis [Not Recovered/Not Resolved]

NARRATIVE: CASE EVENT DATE: 20240303
